FAERS Safety Report 15579525 (Version 1)
Quarter: 2018Q4

REPORT INFORMATION
  Report Type: Spontaneous
  Country: US (occurrence: US)
  Receive Date: 20181030
  Receipt Date: 20181030
  Transmission Date: 20190205
  Serious: No
  Sender: FDA-Public Use
  Company Number: None

PATIENT
  Age: 49 Year

DRUGS (1)
  1. GLATIRAMER 40MG PFS INJ (12/BOX) [Suspect]
     Active Substance: GLATIRAMER
     Indication: MULTIPLE SCLEROSIS
     Dates: start: 201809

REACTIONS (4)
  - Wrong technique in product usage process [None]
  - Injection site pain [None]
  - Injection site pruritus [None]
  - Injection site induration [None]

NARRATIVE: CASE EVENT DATE: 20180910
